FAERS Safety Report 6994569-0 (Version None)
Quarter: 2010Q3

REPORT INFORMATION
  Report Type: 
  Country: None (occurrence: None)
  Receive Date: 20100916
  Receipt Date: 20100916
  Transmission Date: 20110219
  Serious: Yes (Life-Threatening)
  Sender: FDA-Public Use
  Company Number: None

PATIENT
  Age: 64 Year
  Sex: Female
  Weight: 176 kg

DRUGS (16)
  1. ARIXTRA [Suspect]
     Indication: PULMONARY EMBOLISM
     Dosage: 10MG QD SQ
     Route: 058
     Dates: start: 20091229, end: 20100111
  2. FOLIC ACID [Concomitant]
  3. GABAPENTIN [Concomitant]
  4. LIDODERM [Concomitant]
  5. METHOTREXATE [Concomitant]
  6. METOPROLOL TARTRATE [Concomitant]
  7. MULTI-VITAMIN [Concomitant]
  8. NEXIUM [Concomitant]
  9. PREDNISONE TAB [Concomitant]
  10. SULFASALAZINE [Concomitant]
  11. TORSEMIDE [Concomitant]
  12. ULTRAM ER [Concomitant]
  13. ADVAIR DISKUS 100/50 [Concomitant]
  14. BUPROPION HCL [Concomitant]
  15. FERROUS SULFATE [Concomitant]
  16. CELEBREX [Concomitant]

REACTIONS (2)
  - HAEMOGLOBIN DECREASED [None]
  - MUSCLE HAEMORRHAGE [None]
